FAERS Safety Report 5589627-1 (Version None)
Quarter: 2008Q1

REPORT INFORMATION
  Report Type: 
  Country: None (occurrence: None)
  Receive Date: 20080114
  Receipt Date: 20080103
  Transmission Date: 20080703
  Serious: Yes (Other)
  Sender: FDA-Public Use
  Company Number: B0359599A

PATIENT
  Age: 33 Year
  Sex: Male

DRUGS (4)
  1. SEROXAT [Suspect]
     Route: 065
     Dates: start: 19991121, end: 20030601
  2. PARACETAMOL [Suspect]
     Route: 065
  3. CO-DYDRAMOL [Suspect]
     Route: 065
  4. FLUOXETINE HYDROCHLORIDE [Concomitant]
     Route: 065

REACTIONS (13)
  - AGITATION [None]
  - DEPRESSED MOOD [None]
  - DIZZINESS [None]
  - HEADACHE [None]
  - INSOMNIA [None]
  - NAUSEA [None]
  - OVERDOSE [None]
  - PARAESTHESIA [None]
  - SUICIDAL IDEATION [None]
  - TEARFULNESS [None]
  - TENSION [None]
  - VOMITING [None]
  - WITHDRAWAL SYNDROME [None]
